FAERS Safety Report 5813520-X (Version None)
Quarter: 2008Q3

REPORT INFORMATION
  Report Type: 
  Country: None (occurrence: None)
  Receive Date: 20080711
  Receipt Date: 20080703
  Transmission Date: 20090109
  Serious: Yes (Other)
  Sender: FDA-Public Use
  Company Number: 2008AL003416

PATIENT
  Age: 73 Year
  Sex: Female
  Weight: 85.7298 kg

DRUGS (6)
  1. DIGOXIN [Suspect]
     Dosage: 0.125MG DAILY PO
     Route: 048
  2. DIGOXIN [Suspect]
     Dosage: 125MG, PO
     Route: 048
     Dates: start: 20080319, end: 20080326
  3. SYNTHROID [Concomitant]
  4. DILTIAZEM HCL [Concomitant]
  5. PEPCID [Concomitant]
  6. ASPIRIN [Concomitant]

REACTIONS (10)
  - BALANCE DISORDER [None]
  - DIZZINESS [None]
  - FEELING ABNORMAL [None]
  - HEART RATE INCREASED [None]
  - HYPERHIDROSIS [None]
  - MALAISE [None]
  - MOBILITY DECREASED [None]
  - PALPITATIONS [None]
  - PRESYNCOPE [None]
  - VOMITING [None]
